FAERS Safety Report 23318511 (Version 2)
Quarter: 2024Q1

REPORT INFORMATION
  Report Type: Report from Study
  Country: US (occurrence: US)
  Receive Date: 20231220
  Receipt Date: 20240108
  Transmission Date: 20240410
  Serious: Yes (Hospitalization, Other)
  Sender: FDA-Public Use
  Company Number: US-ABBVIE-5462623

PATIENT
  Sex: Male
  Weight: 91 kg

DRUGS (3)
  1. HUMIRA [Suspect]
     Active Substance: ADALIMUMAB
     Indication: Rheumatoid arthritis
     Dosage: FORM STRENGTH: 40 MG
     Route: 058
     Dates: start: 20140101
  2. PREDNISONE [Concomitant]
     Active Substance: PREDNISONE
     Indication: Product used for unknown indication
  3. METHOTREXATE [Concomitant]
     Active Substance: METHOTREXATE
     Indication: Product used for unknown indication

REACTIONS (28)
  - Stenosis [Recovering/Resolving]
  - Heart rate irregular [Recovered/Resolved]
  - Tachycardia [Recovered/Resolved]
  - Arrhythmia [Recovered/Resolved]
  - Asthenia [Unknown]
  - Intervertebral disc protrusion [Not Recovered/Not Resolved]
  - Musculoskeletal disorder [Recovering/Resolving]
  - Osteoarthritis [Recovering/Resolving]
  - Atrial fibrillation [Recovered/Resolved]
  - Cardiac disorder [Not Recovered/Not Resolved]
  - Sciatica [Not Recovered/Not Resolved]
  - Stenosis [Recovering/Resolving]
  - Amyloidosis [Not Recovered/Not Resolved]
  - Nerve compression [Recovering/Resolving]
  - Hypoaesthesia [Not Recovered/Not Resolved]
  - Tachycardia [Recovered/Resolved]
  - Cataract [Unknown]
  - Osteoarthritis [Not Recovered/Not Resolved]
  - Tachycardia [Not Recovered/Not Resolved]
  - Carpal tunnel syndrome [Recovered/Resolved]
  - Arthralgia [Not Recovered/Not Resolved]
  - Fatigue [Unknown]
  - Dyspnoea [Unknown]
  - Heart rate increased [Unknown]
  - Back pain [Unknown]
  - Cervical spinal stenosis [Unknown]
  - Intervertebral disc disorder [Unknown]
  - Polyp [Unknown]

NARRATIVE: CASE EVENT DATE: 20160101
